FAERS Safety Report 4436263-6 (Version None)
Quarter: 2004Q3

REPORT INFORMATION
  Report Type: 
  Country: None (occurrence: None)
  Receive Date: 20040830
  Receipt Date: 20040615
  Transmission Date: 20050211
  Serious: Yes (Life-Threatening)
  Sender: FDA-Public Use
  Company Number: US-BRISTOL-MYERS SQUIBB COMPANY-12616504

PATIENT
  Age: 64 Year
  Sex: Male
  Weight: 80 kg

DRUGS (6)
  1. ERBITUX [Suspect]
     Indication: COLORECTAL CANCER METASTATIC
     Dosage: 1ST DOSE, AFTER 7-8 MINUTES
     Dates: start: 20040615, end: 20040615
  2. BENADRYL [Concomitant]
     Indication: PREMEDICATION
     Route: 042
     Dates: start: 20040615, end: 20040615
  3. ZANTAC [Concomitant]
     Indication: PREMEDICATION
     Dates: start: 20040615, end: 20040615
  4. CAMPTOSAR [Concomitant]
  5. PEPCID [Concomitant]
  6. STEROIDS [Concomitant]

REACTIONS (1)
  - ANAPHYLACTIC SHOCK [None]
